FAERS Safety Report 5204608-5 (Version None)
Quarter: 2007Q1

REPORT INFORMATION
  Report Type: 
  Country: None (occurrence: None)
  Receive Date: 20070110
  Receipt Date: 20060523
  Transmission Date: 20070707
  Serious: No
  Sender: FDA-Public Use
  Company Number: US-BRISTOL-MYERS SQUIBB COMPANY-13386222

PATIENT
  Age: 27 Year
  Sex: Female

DRUGS (1)
  1. ABILIFY [Suspect]
     Dosage: DOSE VALUE:  INCREASED FROM 5 MG TO 10 MG AFTER TWO WEEKS OF THERAPY.

REACTIONS (1)
  - HAEMORRHAGE [None]
